FAERS Safety Report 5063929-X (Version None)
Quarter: 2006Q3

REPORT INFORMATION
  Report Type: 
  Country: None (occurrence: None)
  Receive Date: 20060703
  Receipt Date: 20050926
  Transmission Date: 20061208
  Serious: No
  Sender: FDA-Public Use
  Company Number: 2005S1009527

PATIENT
  Age: 44 Year
  Sex: Male

DRUGS (3)
  1. CLOZAPINE [Suspect]
     Indication: BIPOLAR I DISORDER
     Dosage: 100 MG;QID;PO
     Route: 048
     Dates: start: 20030501
  2. CLOZAPINE [Suspect]
     Indication: SCHIZOAFFECTIVE DISORDER
     Dosage: 100 MG;QID;PO
     Route: 048
     Dates: start: 20030501
  3. VALPROATE SODIUM [Concomitant]

REACTIONS (1)
  - GRANULOCYTOPENIA [None]
